FAERS Safety Report 4638477-9 (Version None)
Quarter: 2005Q2

REPORT INFORMATION
  Report Type: 
  Country: None (occurrence: None)
  Receive Date: 20050418
  Receipt Date: 20050328
  Transmission Date: 20051028
  Serious: Yes (Other)
  Sender: FDA-Public Use
  Company Number: JP_041205422

PATIENT
  Age: 75 Year
  Sex: Female

DRUGS (9)
  1. EVISTA [Suspect]
     Indication: OSTEOPOROSIS POSTMENOPAUSAL
     Dosage: 60 MG/1 DAY
     Dates: start: 20040616, end: 20040924
  2. DISOPYRAMIDE [Concomitant]
  3. LUPRAC (TORASEMIDE) [Concomitant]
  4. ACECOL (TEMOCAPRIL HYDROCHLORIDE) [Concomitant]
  5. LANIRAPID (METILDIGOXIN) [Concomitant]
  6. ALFAROL (ALFACACIDOL) [Concomitant]
  7. ELCITONIN (ELCATONIN) [Concomitant]
  8. BAKUMONDOUTO [Concomitant]
  9. RHYTHMY (RILMAZAFONE) [Concomitant]

REACTIONS (1)
  - ATRIAL THROMBOSIS [None]
